FAERS Safety Report 6872233-6 (Version None)
Quarter: 2010Q3

REPORT INFORMATION
  Report Type: 
  Country: None (occurrence: None)
  Receive Date: 20100723
  Receipt Date: 20100615
  Transmission Date: 20110219
  Serious: Yes (Hospitalization, Disabling)
  Sender: FDA-Public Use
  Company Number: PHHY2010FR47333

PATIENT
  Age: 71 Year
  Sex: Male

DRUGS (4)
  1. CYCLOSPORINE [Suspect]
     Indication: HEART TRANSPLANT
  2. AZATHIOPRINE [Concomitant]
     Indication: HEART TRANSPLANT
  3. CORTICOSTEROIDS [Concomitant]
     Indication: HEART TRANSPLANT
  4. ANTI VITAMIN K [Concomitant]

REACTIONS (4)
  - AUTONOMIC NERVOUS SYSTEM IMBALANCE [None]
  - MALAISE [None]
  - ORTHOSTATIC HYPOTENSION [None]
  - PRESYNCOPE [None]
